FAERS Safety Report 23991722 (Version 2)
Quarter: 2024Q3

REPORT INFORMATION
  Report Type: Spontaneous
  Country: US (occurrence: US)
  Receive Date: 20240619
  Receipt Date: 20240722
  Transmission Date: 20241016
  Serious: No
  Sender: BRISTOL MYERS SQUIBB
  Company Number: US-BRISTOL-MYERS SQUIBB COMPANY-2024-098994

PATIENT
  Age: 79 Year
  Sex: Male

DRUGS (2)
  1. POMALYST [Suspect]
     Active Substance: POMALIDOMIDE
     Indication: Plasma cell myeloma in remission
     Dosage: 1 TIME A DAY FOR 7 DAYS ON AND 7 DAYS OFF FOR 28 DAYS
     Route: 048
     Dates: start: 202405
  2. POMALYST [Suspect]
     Active Substance: POMALIDOMIDE
     Dosage: 1 TIME A DAY FOR 7 DAYS ON AND 7 DAYS OFF FOR 28 DAYS
     Route: 048
     Dates: start: 202405

REACTIONS (3)
  - Rash [Unknown]
  - Off label use [Unknown]
  - Pain in extremity [Unknown]
